FAERS Safety Report 6558939-7 (Version None)
Quarter: 2010Q1

REPORT INFORMATION
  Report Type: 
  Country: None (occurrence: None)
  Receive Date: 20100129
  Receipt Date: 20100125
  Transmission Date: 20100710
  Serious: Yes (Other)
  Sender: FDA-Public Use
  Company Number: US-JNJCH-2010002458

PATIENT
  Age: 14 Year
  Sex: Female

DRUGS (1)
  1. ROLAIDS TAB [Suspect]
     Indication: ABDOMINAL PAIN UPPER
     Dosage: TEXT:ONE OR TWO UNSPECIFIED
     Route: 048

REACTIONS (2)
  - CONVERSION DISORDER [None]
  - DRUG INEFFECTIVE [None]
